FAERS Safety Report 17108415 (Version 2)
Quarter: 2019Q4

REPORT INFORMATION
  Report Type: Spontaneous
  Country: FI (occurrence: FI)
  Receive Date: 20191203
  Receipt Date: 20191216
  Transmission Date: 20200122
  Serious: Yes (Hospitalization)
  Sender: FDA-Public Use
  Company Number: FI-BAYER-2019-197537

PATIENT
  Age: 25 Year
  Sex: Female

DRUGS (2)
  1. KYLEENA [Suspect]
     Active Substance: LEVONORGESTREL
     Indication: CONTRACEPTION
     Dosage: 17.5 MCG/24HR, CONT
     Route: 015
     Dates: start: 201903, end: 20191014
  2. OBSIDAN [FERROUS GLYCINE SULFATE] [Concomitant]
     Dosage: 100 MG, QD

REACTIONS (3)
  - Ectopic pregnancy with contraceptive device [Unknown]
  - Laparoscopic surgery [Unknown]
  - Drug ineffective [Unknown]

NARRATIVE: CASE EVENT DATE: 20191014
